FAERS Safety Report 7332863-4 (Version None)
Quarter: 2011Q1

REPORT INFORMATION
  Report Type: 
  Country: None (occurrence: None)
  Receive Date: 20110304
  Receipt Date: 20110225
  Transmission Date: 20110831
  Serious: Yes (Hospitalization, Other)
  Sender: FDA-Public Use
  Company Number: US-AMGEN-USASP2011011057

PATIENT
  Age: 63 Year
  Sex: Female

DRUGS (1)
  1. NPLATE [Suspect]
     Indication: IDIOPATHIC THROMBOCYTOPENIC PURPURA
     Dosage: 2 A?G/KG, QWK
     Dates: start: 20110128

REACTIONS (5)
  - OROPHARYNGEAL BLISTERING [None]
  - CONTUSION [None]
  - PETECHIAE [None]
  - VESSEL PUNCTURE SITE HAEMORRHAGE [None]
  - PLATELET COUNT DECREASED [None]
